FAERS Safety Report 12717581 (Version 4)
Quarter: 2016Q4

REPORT INFORMATION
  Report Type: Report from Study
  Country: CO (occurrence: CO)
  Receive Date: 20160906
  Receipt Date: 20161202
  Transmission Date: 20170207
  Serious: Yes (Hospitalization, Other)
  Sender: FDA-Public Use
  Company Number: PHHY2016CO056726

PATIENT
  Age: 9 Year
  Sex: Male
  Weight: 33.5 kg

DRUGS (2)
  1. GLIVEC [Suspect]
     Active Substance: IMATINIB MESYLATE
     Dosage: 400 MG, QD
     Route: 048
     Dates: start: 20160920
  2. GLIVEC [Suspect]
     Active Substance: IMATINIB MESYLATE
     Indication: ACUTE LYMPHOCYTIC LEUKAEMIA
     Dosage: 400 MG, QD
     Route: 048
     Dates: start: 20150801, end: 20160911

REACTIONS (12)
  - Fatigue [Unknown]
  - Seizure [Unknown]
  - Malaise [Unknown]
  - Haemoglobin decreased [Unknown]
  - Brain oedema [Recovered/Resolved]
  - Mental disorder [Unknown]
  - Acute lymphocytic leukaemia recurrent [Unknown]
  - Urinary tract infection [Unknown]
  - Pain [Unknown]
  - Weight decreased [Unknown]
  - Asthenia [Unknown]
  - Decreased immune responsiveness [Unknown]

NARRATIVE: CASE EVENT DATE: 20160816
